FAERS Safety Report 21898597 (Version 5)
Quarter: 2023Q2

REPORT INFORMATION
  Report Type: Spontaneous
  Country: US (occurrence: US)
  Receive Date: 20230123
  Receipt Date: 20230616
  Transmission Date: 20230722
  Serious: Yes (Disabling, Other)
  Sender: FDA-Public Use
  Company Number: US-002147023-NVSC2023US011362

PATIENT
  Age: 60 Year
  Sex: Female

DRUGS (5)
  1. RECLAST [Suspect]
     Active Substance: ZOLEDRONIC ACID
     Indication: Osteoporosis
     Dosage: 5MG/100 ML, Q12MO
     Route: 041
     Dates: start: 20230112
  2. LEVOTHYROXINE [Concomitant]
     Active Substance: LEVOTHYROXINE
     Indication: Product used for unknown indication
     Dosage: UNK
     Route: 065
  3. PREDNISONE [Concomitant]
     Active Substance: PREDNISONE
     Indication: Product used for unknown indication
     Dosage: UNK
     Route: 065
  4. ADVIL [Concomitant]
     Active Substance: IBUPROFEN
     Indication: Product used for unknown indication
     Dosage: UNK
     Route: 065
     Dates: start: 20230112
  5. DICLOFENAC SODIUM [Concomitant]
     Active Substance: DICLOFENAC SODIUM
     Indication: Product used for unknown indication
     Dosage: UNK
     Route: 065
     Dates: start: 20230112

REACTIONS (20)
  - Insomnia [Recovering/Resolving]
  - Headache [Recovered/Resolved]
  - Polyarthritis [Unknown]
  - Autoimmune disorder [Unknown]
  - Pancreatitis [Unknown]
  - Feeling abnormal [Recovering/Resolving]
  - Swelling [Recovering/Resolving]
  - Inflammation [Recovering/Resolving]
  - Lymph node pain [Unknown]
  - Eye swelling [Unknown]
  - Gastric disorder [Unknown]
  - Hypokinesia [Unknown]
  - Arthralgia [Unknown]
  - Nausea [Unknown]
  - Ocular hyperaemia [Unknown]
  - Pain [Unknown]
  - Neck pain [Unknown]
  - Joint swelling [Unknown]
  - Arthritis [Unknown]
  - Bone density abnormal [Unknown]

NARRATIVE: CASE EVENT DATE: 20230113
